FAERS Safety Report 8696716 (Version 3)
Quarter: 2013Q1

REPORT INFORMATION
  Report Type: Spontaneous
  Country: US (occurrence: US)
  Receive Date: 20120801
  Receipt Date: 20130117
  Transmission Date: 20140127
  Serious: No
  Sender: FDA-Public Use
  Company Number: US-PFIZER INC-2012182665

PATIENT
  Age: 55 Year
  Sex: Female
  Weight: 67.57 kg

DRUGS (5)
  1. LYRICA [Suspect]
     Indication: FIBROMYALGIA
     Dosage: UNK
     Route: 048
     Dates: start: 2011, end: 201106
  2. LYRICA [Suspect]
     Indication: OSTEOARTHRITIS
  3. CYMBALTA [Suspect]
     Indication: FIBROMYALGIA
     Dosage: 30 MG, UNK
     Route: 048
     Dates: start: 2011, end: 201106
  4. CYMBALTA [Suspect]
     Indication: OSTEOARTHRITIS
  5. EFFEXOR [Concomitant]

REACTIONS (3)
  - Stomatitis [Recovered/Resolved]
  - Mouth ulceration [Unknown]
  - Off label use [Unknown]
